FAERS Safety Report 4645756-8 (Version None)
Quarter: 2005Q2

REPORT INFORMATION
  Report Type: 
  Country: None (occurrence: None)
  Receive Date: 20050425
  Receipt Date: 20050412
  Transmission Date: 20051028
  Serious: Yes (Hospitalization)
  Sender: FDA-Public Use
  Company Number: 2005058554

PATIENT
  Age: 41 Year
  Sex: Female

DRUGS (7)
  1. ELLENCE [Suspect]
     Indication: BREAST CANCER
     Dosage: 182 MG
     Dates: start: 20041130, end: 20050125
  2. CYCLOPHOSPHAMIDE [Concomitant]
     Indication: BREAST CANCER
     Dosage: 1260 MG
     Dates: start: 20041130
  3. EPOETIN ALFA (EPOETIN ALFA) [Suspect]
     Indication: BREAST CANCER
     Dosage: 60000 I.U. (INTERVAL: EVERY WEEK FOR 3 WEEKS), SUBCUTANEOUS
     Route: 058
     Dates: start: 20050315, end: 20050405
  4. FILGRASTIM (FILGRASTIM) [Suspect]
     Indication: BREAST CANCER
     Dosage: 240 MCG (INTERVAL: 12 DAYS), SUBCUTANEOUS
     Route: 058
     Dates: start: 20050302, end: 20050314
  5. DEXAMETHASONE [Concomitant]
  6. ONDANSETRON (ONDASETRON) [Concomitant]
  7. PROCHLORPERAZINE MALEATE [Concomitant]

REACTIONS (2)
  - PERICARDIAL EFFUSION [None]
  - PNEUMONITIS [None]
